FAERS Safety Report 8496193-X (Version None)
Quarter: 2012Q3

REPORT INFORMATION
  Report Type: 
  Country: None (occurrence: None)
  Receive Date: 20120709
  Receipt Date: 20120626
  Transmission Date: 20120928
  Serious: Yes (Hospitalization)
  Sender: FDA-Public Use
  Company Number: US-ALEXION-A201200877

PATIENT
  Sex: Male
  Weight: 67 kg

DRUGS (13)
  1. COLACE [Concomitant]
     Dosage: 100 MG, BID
     Route: 048
  2. AMLODIPINE [Concomitant]
     Dosage: 5 MG, BID
     Route: 048
  3. EMLA [Concomitant]
     Dosage: 2.5% APPLY TO PORT SITE 30 MINUTES PRIOR TO ACCESS
     Route: 061
  4. PROMETHAZINE [Concomitant]
     Dosage: 12.5 MG, PRN Q6H
     Route: 048
  5. HYDROCHLOROTHIAZIDE [Concomitant]
     Dosage: 25 MG, QD EVERY MORNING
     Route: 048
  6. ONDANSETRON [Concomitant]
     Indication: VOMITING
  7. CLONIDINE [Concomitant]
     Dosage: 0.2 MG, QD, WEAR 1 PATCH/WEEK AND CHANGE EVERY SATURDAY
     Route: 062
  8. FAMOTIDINE [Concomitant]
     Dosage: 10 MG, BID
     Route: 048
  9. SOLIRIS [Suspect]
     Indication: HAEMOLYTIC URAEMIC SYNDROME
     Dosage: 900 MG, SINGLE
     Route: 042
     Dates: start: 20120425, end: 20120425
  10. FUROSEMIDE [Concomitant]
     Dosage: 20 MG, QD
     Route: 048
  11. CALCIUM WITH VITAMIN D [Concomitant]
     Dosage: 600 MG-400, TAKE 1 TABLET BID
     Route: 048
  12. LABETALOL HCL [Concomitant]
     Dosage: 300 MG, TID
     Route: 048
  13. ONDANSETRON [Concomitant]
     Indication: NAUSEA
     Dosage: 8 MG, TID
     Route: 048

REACTIONS (7)
  - SKIN EXFOLIATION [None]
  - HYPOMAGNESAEMIA [None]
  - HYPOALBUMINAEMIA [None]
  - SKIN WOUND [None]
  - FEBRILE NEUTROPENIA [None]
  - HYPERTENSION [None]
  - HYPOKALAEMIA [None]
